FAERS Safety Report 23195391 (Version 1)
Quarter: 2023Q4

REPORT INFORMATION
  Report Type: Spontaneous
  Country: FR (occurrence: FR)
  Receive Date: 20231117
  Receipt Date: 20231117
  Transmission Date: 20240110
  Serious: Yes (Hospitalization)
  Sender: FDA-Public Use
  Company Number: None

PATIENT
  Age: 31 Year
  Sex: Male
  Weight: 55 kg

DRUGS (6)
  1. FLUCONAZOLE [Suspect]
     Active Substance: FLUCONAZOLE
     Indication: Candida infection
     Dosage: UNIT DOSE:400 MG , FREQUENCY TIME : 1 DAY, DURATION : 7 DAYS
     Dates: start: 20231003, end: 20231010
  2. PIPERACILLIN SODIUM\TAZOBACTAM SODIUM [Suspect]
     Active Substance: PIPERACILLIN SODIUM\TAZOBACTAM SODIUM
     Indication: Antibiotic therapy
     Dosage: UNIT DOSE: 12 GRAM , FREQUENCY TIME : 1 DAY, DURATION : 22 DAYS
     Dates: start: 20230918, end: 20231010
  3. CITALOPRAM [Concomitant]
     Active Substance: CITALOPRAM HYDROBROMIDE
     Indication: Product used for unknown indication
     Dosage: BASE, UNIT DOSE: 10 MG , FREQUENCY TIME : 1 DAY, THERAPY START DATE AND END DATE : ASKU
  4. METOCLOPRAMIDE [Concomitant]
     Active Substance: METOCLOPRAMIDE
     Indication: Product used for unknown indication
     Dosage: UNIT DOSE: 10 MG , FREQUENCY TIME : 1 AS REQUIRED, THERAPY START DATE AND END DATE : ASKU
  5. CANCIDAS [Concomitant]
     Active Substance: CASPOFUNGIN ACETATE
     Indication: Product used for unknown indication
     Dosage: DURATION : 11 DAYS
     Dates: start: 20230922, end: 20231003
  6. TRIMEBUTINE [Concomitant]
     Active Substance: TRIMEBUTINE
     Indication: Product used for unknown indication
     Dosage: UNIT DOSE: 600 MG , FREQUENCY TIME : 1 DAY, THERAPY START DATE AND END DATE : ASKU

REACTIONS (2)
  - Febrile neutropenia [Recovered/Resolved]
  - Platelet count decreased [Recovered/Resolved]

NARRATIVE: CASE EVENT DATE: 20231010
